FAERS Safety Report 9858340 (Version 1)
Quarter: 2014Q1

REPORT INFORMATION
  Report Type: Report from Study
  Country: NL (occurrence: NL)
  Receive Date: 20140131
  Receipt Date: 20140131
  Transmission Date: 20141002
  Serious: Yes (Hospitalization)
  Sender: FDA-Public Use
  Company Number: NL-JNJFOC-20140117633

PATIENT
  Age: 85 Year
  Sex: Female
  Weight: 82 kg

DRUGS (11)
  1. XARELTO [Suspect]
     Indication: ATRIAL FIBRILLATION
     Route: 048
     Dates: start: 20130918
  2. XARELTO [Suspect]
     Indication: CEREBROVASCULAR ACCIDENT PROPHYLAXIS
     Route: 048
     Dates: start: 20130918
  3. PANTOPRAZOLE [Concomitant]
     Route: 065
     Dates: start: 20130629
  4. LANTUS [Concomitant]
     Route: 065
     Dates: start: 20120101
  5. AMITRIPTYLINE [Concomitant]
     Route: 065
     Dates: start: 2009
  6. CLOPIDOGREL [Concomitant]
     Route: 065
     Dates: start: 20130629
  7. METOPROLOL [Concomitant]
     Route: 065
     Dates: start: 20130629
  8. LISINOPRIL [Concomitant]
     Route: 065
     Dates: start: 20130629
  9. SIMVASTATINE [Concomitant]
     Route: 065
     Dates: start: 20130629
  10. ACENOCOUMAROL [Concomitant]
     Indication: ANTICOAGULANT THERAPY
     Route: 065
     Dates: start: 20130629, end: 20130916
  11. METFORMINE [Concomitant]
     Route: 065
     Dates: start: 20130630

REACTIONS (2)
  - Haemoglobin decreased [Recovered/Resolved]
  - Constipation [Recovered/Resolved]
